FAERS Safety Report 8024192-0 (Version None)
Quarter: 2012Q1

REPORT INFORMATION
  Report Type: 
  Country: None (occurrence: None)
  Receive Date: 20120105
  Receipt Date: 20111230
  Transmission Date: 20120608
  Serious: Yes (Death)
  Sender: FDA-Public Use
  Company Number: US-PFIZER INC-2011308772

PATIENT
  Age: 19 Year
  Sex: Female

DRUGS (8)
  1. DIAZEPAM [Suspect]
     Route: 048
  2. HYDROXYZINE [Suspect]
     Route: 048
  3. ASPIRIN [Suspect]
  4. ATENOLOL [Suspect]
     Route: 048
  5. AMLODIPINE BESYLATE [Suspect]
     Route: 048
  6. DIPHENHYDRAMINE HCL [Suspect]
     Dosage: UNK
  7. ACETAMINOPHEN AND HYDROCODONE BITARTRATE [Suspect]
     Dosage: UNK
  8. TRIAMTERENE AND HYDROCHLOROTHIAZIDE [Suspect]
     Dosage: UNK

REACTIONS (4)
  - RESPIRATORY ARREST [None]
  - COMPLETED SUICIDE [None]
  - CARDIAC ARREST [None]
  - TOXICITY TO VARIOUS AGENTS [None]
